FAERS Safety Report 6732243-6 (Version None)
Quarter: 2010Q2

REPORT INFORMATION
  Report Type: 
  Country: None (occurrence: None)
  Receive Date: 20100519
  Receipt Date: 20100514
  Transmission Date: 20101027
  Serious: Yes (Other)
  Sender: FDA-Public Use
  Company Number: A0859764A

PATIENT
  Age: 82 Year
  Sex: Female

DRUGS (6)
  1. ADVAIR DISKUS 100/50 [Suspect]
     Indication: ASTHMA
     Dosage: 1PUFF TWICE PER DAY
     Route: 055
     Dates: start: 20090501
  2. ULTRACET [Concomitant]
  3. TOPROL-XL [Concomitant]
  4. ATACAND [Concomitant]
  5. DILANTIN [Concomitant]
  6. ALLEGRA [Concomitant]

REACTIONS (5)
  - DYSPHONIA [None]
  - ORAL NEOPLASM [None]
  - OROPHARYNGEAL PAIN [None]
  - STOMATITIS [None]
  - TONGUE DISORDER [None]
